FAERS Safety Report 10211722 (Version 1)
Quarter: 2014Q2

REPORT INFORMATION
  Report Type: Spontaneous
  Country: IT (occurrence: None)
  Receive Date: 20140528
  Receipt Date: 20140528
  Transmission Date: 20141212
  Serious: Yes (Other)
  Sender: FDA-Public Use
  Company Number: 2014HINLIT0450

PATIENT
  Age: 7 Year
  Sex: Female

DRUGS (4)
  1. TENOFOVIR (TENOFOVIR) UNKNOWN [Suspect]
     Indication: HIV INFECTION
     Dates: start: 2008
  2. EFAVIRENZ (EFAVIRENZ) [Concomitant]
  3. LAMIVUDINE (LAMIVUDINE) [Concomitant]
  4. ABACAVIR (ABACAVIR) [Concomitant]

REACTIONS (2)
  - Renal tubular disorder [None]
  - Genetic polymorphism [None]
